FAERS Safety Report 19783726 (Version 1)
Quarter: 2021Q3

REPORT INFORMATION
  Report Type: Spontaneous
  Country: US (occurrence: US)
  Receive Date: 20210902
  Receipt Date: 20210902
  Transmission Date: 20211014
  Serious: No
  Sender: FDA-Public Use
  Company Number: None

PATIENT

DRUGS (2)
  1. PANTOPRAZOLE [Suspect]
     Active Substance: PANTOPRAZOLE
  2. ETOMIDATE. [Suspect]
     Active Substance: ETOMIDATE

REACTIONS (4)
  - Product packaging confusion [None]
  - Wrong product administered [None]
  - Product colour issue [None]
  - Wrong product stored [None]

NARRATIVE: CASE EVENT DATE: 20210831
